FAERS Safety Report 14138145 (Version 2)
Quarter: 2020Q3

REPORT INFORMATION
  Report Type: Report from Study
  Country: ES (occurrence: ES)
  Receive Date: 20171027
  Receipt Date: 20171107
  Transmission Date: 20201104
  Serious: Yes (Death, Life-Threatening, Hospitalization, Other)
  Sender: FDA-Public Use
  Company Number: ES-PFIZER INC-2017459276

PATIENT
  Age: 59 Year
  Sex: Male

DRUGS (20)
  1. CARBOPLATIN. [Suspect]
     Active Substance: CARBOPLATIN
     Indication: SMALL CELL LUNG CANCER
     Dosage: 5 AUC
     Route: 065
     Dates: start: 20170920
  2. ETOPOSIDE. [Suspect]
     Active Substance: ETOPOSIDE
     Indication: SMALL CELL LUNG CANCER
     Dosage: 100 MG/M2
     Route: 065
     Dates: start: 20170920, end: 20170920
  3. TREMELIMUMAB. [Suspect]
     Active Substance: TREMELIMUMAB
     Indication: SMALL CELL LUNG CANCER
     Dosage: 75 MG, CYCLIC (EVERY FOUR WEEKS)
     Route: 042
     Dates: start: 20170920
  4. DURVALUMAB. [Suspect]
     Active Substance: DURVALUMAB
     Indication: SMALL CELL LUNG CANCER
     Dosage: 1500 MG, CYCLIC (EVERY FOUR WEEKS)
     Route: 042
     Dates: start: 20170920
  5. EZETROL [Concomitant]
     Active Substance: EZETIMIBE
     Indication: HYPERCHOLESTEROLAEMIA
     Dosage: 10 MG, 1X/DAY
     Route: 048
     Dates: start: 20130812
  6. LORAZEPAN [Concomitant]
     Active Substance: LORAZEPAM
     Indication: ANXIETY
     Dosage: 1.0MG AS REQUIRED
     Route: 048
  7. DEXKETOPROFEN [Concomitant]
     Active Substance: DEXKETOPROFEN
     Indication: TUMOUR PAIN
     Dosage: 50 MG, 3X/DAY
     Route: 042
     Dates: start: 20170915, end: 20170919
  8. METOCLOPRAMIDE. [Concomitant]
     Active Substance: METOCLOPRAMIDE
     Indication: ANTIEMETIC SUPPORTIVE CARE
     Dosage: 10.0MG AS REQUIRED
     Route: 042
     Dates: start: 20170915, end: 20170921
  9. ETOPOSIDE. [Suspect]
     Active Substance: ETOPOSIDE
     Dosage: 100 MG/M2
     Route: 065
     Dates: start: 20170922
  10. OMEPRAZOL [Concomitant]
     Active Substance: OMEPRAZOLE
     Indication: PROPHYLAXIS
     Dosage: 20 MG, 1X/DAY
     Route: 048
     Dates: start: 20130812
  11. CLEXANE [Concomitant]
     Active Substance: ENOXAPARIN SODIUM
     Indication: THROMBOSIS PROPHYLAXIS
     Dosage: 60 MG, 1X/DAY
     Route: 058
     Dates: start: 20170811
  12. METAMIZOLE [Concomitant]
     Active Substance: METAMIZOLE
     Indication: TUMOUR PAIN
     Dosage: 2 MG, 3X/DAY
     Route: 042
     Dates: start: 20170916, end: 20170921
  13. MYCOSTATIN [Concomitant]
     Active Substance: NYSTATIN
     Indication: OROPHARYNGEAL CANDIDIASIS
     Dosage: 10 ML, 3X/DAY
     Route: 002
     Dates: start: 20170921
  14. ETOPOSIDE. [Suspect]
     Active Substance: ETOPOSIDE
     Dosage: 100 MG/M2
     Route: 065
     Dates: start: 20170921, end: 20170921
  15. MASDIL [Concomitant]
     Active Substance: DILTIAZEM HYDROCHLORIDE
     Indication: ACUTE MYOCARDIAL INFARCTION
     Dosage: 120 MG, 2X/DAY
     Route: 048
  16. LEVOFLOXACINO [Concomitant]
     Active Substance: LEVOFLOXACIN
     Indication: INFECTION PROPHYLAXIS
     Dosage: 500 MG, 1X/DAY
     Route: 048
     Dates: start: 20170914, end: 20170919
  17. TRAMADOL. [Concomitant]
     Active Substance: TRAMADOL
     Indication: TUMOUR PAIN
     Dosage: 100.0MG AS REQUIRED
     Route: 042
     Dates: start: 20170915, end: 20170921
  18. GRANOCYTE [Concomitant]
     Active Substance: LENOGRASTIM
     Indication: PROPHYLAXIS
     Dosage: 34*10E6 UI/ML
     Route: 058
     Dates: start: 20170922, end: 20170925
  19. METHYLPREDNISOLONE. [Concomitant]
     Active Substance: METHYLPREDNISOLONE
     Indication: TUMOUR PAIN
     Dosage: 40 MG, 1X/DAY
     Route: 042
     Dates: start: 20170911, end: 20170921
  20. FLUCONAZOLE. [Concomitant]
     Active Substance: FLUCONAZOLE
     Indication: OROPHARYNGEAL CANDIDIASIS
     Dosage: 200 MG, 1X/DAY
     Route: 048
     Dates: start: 20170921, end: 20170925

REACTIONS (3)
  - Platelet count decreased [Not Recovered/Not Resolved]
  - Pneumonitis [Fatal]
  - Hepatitis [Fatal]

NARRATIVE: CASE EVENT DATE: 20170925
